FAERS Safety Report 6169689-3 (Version None)
Quarter: 2009Q2

REPORT INFORMATION
  Report Type: 
  Country: None (occurrence: None)
  Receive Date: 20090428
  Receipt Date: 20090414
  Transmission Date: 20091009
  Serious: Yes (Hospitalization)
  Sender: FDA-Public Use
  Company Number: JP-BIOGENIDEC-2007BI010670

PATIENT
  Age: 10 Year
  Sex: Female

DRUGS (20)
  1. AVONEX [Suspect]
     Indication: RELAPSING-REMITTING MULTIPLE SCLEROSIS
     Route: 030
     Dates: start: 20070307, end: 20070413
  2. AVONEX [Suspect]
     Route: 030
     Dates: start: 20070420, end: 20070830
  3. AVONEX [Suspect]
     Route: 030
     Dates: start: 20070906, end: 20070927
  4. AVONEX [Suspect]
     Route: 030
     Dates: start: 20071004, end: 20071025
  5. AVONEX [Suspect]
     Route: 030
     Dates: start: 20071101, end: 20071122
  6. AVONEX [Suspect]
     Route: 030
     Dates: start: 20071129, end: 20071129
  7. AVONEX [Suspect]
     Route: 030
     Dates: start: 20071206
  8. DEPAKENE [Concomitant]
     Dates: start: 20061025
  9. ALFAROL [Concomitant]
     Dates: start: 20051020
  10. BLOSTAR M [Concomitant]
     Dates: start: 20050128
  11. LAXOBERON [Concomitant]
     Dates: start: 20051001
  12. PREDNISOLONE [Concomitant]
     Dates: start: 20050128
  13. SOLU-MEDROL [Concomitant]
     Dates: start: 20050101
  14. BRUFEN [Concomitant]
     Dates: start: 20050530
  15. FREEZE-DRIED LIVE ATTENUATED MEASLES AND RUBELLA COMBINED VACCINE [Concomitant]
     Route: 058
     Dates: start: 20080204
  16. SAWACILLIN [Concomitant]
     Dates: start: 20080128, end: 20080131
  17. NAUZELIN [Concomitant]
     Dates: start: 20071225, end: 20071225
  18. SOLITA-T NUMBER 1 [Concomitant]
     Dates: start: 20071225, end: 20071225
  19. SOLITA-T NUMBER 3 [Concomitant]
     Dates: start: 20071225, end: 20071226
  20. DASEN [Concomitant]
     Dates: start: 20081011, end: 20081016

REACTIONS (11)
  - ABDOMINAL PAIN UPPER [None]
  - BRONCHITIS [None]
  - DRUG INEFFECTIVE [None]
  - GASTROENTERITIS [None]
  - HEADACHE [None]
  - MALAISE [None]
  - MULTIPLE SCLEROSIS RELAPSE [None]
  - PYREXIA [None]
  - RHINORRHOEA [None]
  - SNEEZING [None]
  - UPPER RESPIRATORY TRACT INFLAMMATION [None]
